FAERS Safety Report 6242213-2 (Version None)
Quarter: 2009Q2

REPORT INFORMATION
  Report Type: 
  Country: None (occurrence: None)
  Receive Date: 20090624
  Receipt Date: 20090618
  Transmission Date: 20091009
  Serious: Yes (Hospitalization)
  Sender: FDA-Public Use
  Company Number: JP-BRISTOL-MYERS SQUIBB COMPANY-14674949

PATIENT
  Age: 62 Year
  Sex: Male
  Weight: 56 kg

DRUGS (4)
  1. ERBITUX [Suspect]
     Indication: RECTAL CANCER
     Dosage: DOSE REDUCED TO 390MG ON 27JAN09.625MG-20JAN-20JAN09.MOST RECENT INF ON 03FEB09-390MG
     Route: 042
     Dates: start: 20090120
  2. IRINOTECAN HCL [Suspect]
     Indication: RECTAL CANCER
     Dosage: MOST RECENT INF ON 03FEB09-390MG
     Route: 042
     Dates: start: 20090120
  3. DIPHENHYDRAMINE HCL [Concomitant]
     Indication: PREMEDICATION
     Dosage: FORM -TABS
     Route: 048
     Dates: start: 20090120
  4. DECADRON [Concomitant]
     Indication: PREMEDICATION
     Route: 042
     Dates: start: 20090120

REACTIONS (1)
  - ANOREXIA [None]
